APPROVED DRUG PRODUCT: TESTOSTERONE
Active Ingredient: TESTOSTERONE
Strength: 25MG/2.5GM PACKET
Dosage Form/Route: GEL;TRANSDERMAL
Application: N202763 | Product #001
Applicant: ANI PHARMACEUTICALS INC
Approved: Feb 14, 2012 | RLD: No | RS: No | Type: DISCN